FAERS Safety Report 6380964-X (Version None)
Quarter: 2009Q3

REPORT INFORMATION
  Report Type: 
  Country: None (occurrence: None)
  Receive Date: 20090925
  Receipt Date: 20090925
  Transmission Date: 20100115
  Serious: Yes (Other)
  Sender: FDA-Public Use
  Company Number: None

PATIENT
  Age: 48 Year
  Sex: Female
  Weight: 68.9467 kg

DRUGS (1)
  1. KY INTENSE AROUSAL GEL [Suspect]
     Dates: start: 20090806

REACTIONS (3)
  - APPLICATION SITE BURN [None]
  - CAUSTIC INJURY [None]
  - URINARY RETENTION [None]
